FAERS Safety Report 19190536 (Version 5)
Quarter: 2021Q2

REPORT INFORMATION
  Report Type: Spontaneous
  Country: IT (occurrence: IT)
  Receive Date: 20210428
  Receipt Date: 20210622
  Transmission Date: 20210717
  Serious: Yes (Other)
  Sender: FDA-Public Use
  Company Number: NVSC2021IT093715

PATIENT
  Age: 60 Year
  Sex: Female

DRUGS (3)
  1. CIPROFLOXACIN. [Interacting]
     Active Substance: CIPROFLOXACIN
     Indication: ANTIBIOTIC PROPHYLAXIS
  2. CIPROFLOXACIN. [Interacting]
     Active Substance: CIPROFLOXACIN
     Indication: EVIDENCE BASED TREATMENT
  3. CIPROFLOXACIN. [Suspect]
     Active Substance: CIPROFLOXACIN
     Indication: PYREXIA
     Dosage: 500 MILLIGRAM, BID
     Route: 048
     Dates: start: 20201025, end: 20201105

REACTIONS (5)
  - Toxicity to various agents [Recovered/Resolved]
  - Thrombocytopenia [Recovered/Resolved]
  - Febrile neutropenia [Recovered/Resolved]
  - Asthenia [Recovered/Resolved]
  - Drug interaction [Unknown]

NARRATIVE: CASE EVENT DATE: 20201029
